FAERS Safety Report 18766310 (Version 10)
Quarter: 2021Q1

REPORT INFORMATION
  Report Type: Report from Study
  Country: None (occurrence: ES)
  Receive Date: 20210120
  Receipt Date: 20210219
  Transmission Date: 20210419
  Serious: Yes (Other)
  Sender: FDA-Public Use
  Company Number: ES-ABBVIE-21K-144-3736081-00

PATIENT
  Age: 84 Year
  Sex: Female
  Weight: 49 kg

DRUGS (3)
  1. DUODOPA [Suspect]
     Active Substance: CARBIDOPA\LEVODOPA
     Dosage: MORNING DOSE 9 ML, CONTINUOUS DOSE 4 ML
     Route: 050
     Dates: start: 202101
  2. DUODOPA [Suspect]
     Active Substance: CARBIDOPA\LEVODOPA
     Indication: PARKINSON^S DISEASE
     Dosage: MORNING DOSE 14 ML, CONTINUOUS DOSE 4.5 ML
     Route: 050
     Dates: start: 20180219, end: 20210120
  3. DUODOPA [Suspect]
     Active Substance: CARBIDOPA\LEVODOPA
     Dosage: MORNING DOSE 11 ML, CONTINUOUS DOSE 4.2 ML
     Route: 050
     Dates: start: 20210120, end: 202101

REACTIONS (10)
  - Epilepsy [Recovered/Resolved]
  - Muscle spasms [Recovered/Resolved]
  - Syncope [Unknown]
  - Myoclonus [Unknown]
  - Dyskinesia [Recovering/Resolving]
  - Unresponsive to stimuli [Unknown]
  - Muscle spasms [Recovering/Resolving]
  - Orthostatic hypotension [Unknown]
  - Paralysis [Not Recovered/Not Resolved]
  - Iron deficiency anaemia [Recovering/Resolving]

NARRATIVE: CASE EVENT DATE: 202101
